FAERS Safety Report 6257825-X (Version None)
Quarter: 2009Q3

REPORT INFORMATION
  Report Type: 
  Country: None (occurrence: None)
  Receive Date: 20090706
  Receipt Date: 20090623
  Transmission Date: 20100115
  Serious: Yes (Other)
  Sender: FDA-Public Use
  Company Number: US-MERCK-0906USA04824

PATIENT
  Age: 43 Year
  Sex: Male
  Weight: 97 kg

DRUGS (13)
  1. DECADRON [Suspect]
     Indication: KAPOSI'S SARCOMA
     Route: 048
  2. TRUVADA [Concomitant]
     Route: 065
  3. MEPRON [Concomitant]
     Route: 065
  4. PREVACID [Concomitant]
     Route: 065
  5. PROCHLORPERAZINE [Concomitant]
     Indication: NAUSEA
     Route: 065
  6. NORVIR [Concomitant]
     Route: 065
  7. TESTOSTERONE CYPIONATE [Concomitant]
     Route: 065
  8. ZOLPIDEM TARTRATE [Concomitant]
     Route: 065
  9. ALLEGRA [Concomitant]
     Indication: SEASONAL ALLERGY
     Route: 065
  10. PREZISTA [Concomitant]
     Route: 065
     Dates: start: 20081001
  11. SULFACETAMIDE SODIUM [Concomitant]
     Route: 061
  12. DOXIL [Suspect]
     Indication: KAPOSI'S SARCOMA
     Route: 042
     Dates: start: 20090216
  13. ANTIOXIDANTS (UNSPECIFIED) [Concomitant]
     Route: 065

REACTIONS (7)
  - BLISTER [None]
  - BLOOD GLUCOSE INCREASED [None]
  - DYSPEPSIA [None]
  - FATIGUE [None]
  - MILIA [None]
  - PAIN [None]
  - WEIGHT INCREASED [None]
